FAERS Safety Report 13359699 (Version 2)
Quarter: 2017Q3

REPORT INFORMATION
  Report Type: Spontaneous
  Country: US (occurrence: US)
  Receive Date: 20170322
  Receipt Date: 20170920
  Transmission Date: 20171127
  Serious: Yes (Other)
  Sender: FDA-Public Use
  Company Number: US-ELI_LILLY_AND_COMPANY-US201608004561

PATIENT
  Sex: Female

DRUGS (2)
  1. CYMBALTA [Suspect]
     Active Substance: DULOXETINE HYDROCHLORIDE
     Indication: BACK PAIN
  2. CYMBALTA [Suspect]
     Active Substance: DULOXETINE HYDROCHLORIDE
     Indication: PAIN IN EXTREMITY
     Dosage: UNK, UNKNOWN
     Route: 048
     Dates: start: 20081206, end: 2016

REACTIONS (31)
  - Alopecia [Unknown]
  - Weight increased [Unknown]
  - Vomiting [Unknown]
  - Irritability [Unknown]
  - Affect lability [Unknown]
  - Confusional state [Unknown]
  - Memory impairment [Unknown]
  - Diarrhoea [Unknown]
  - Lethargy [Unknown]
  - Restlessness [Unknown]
  - Hyperhidrosis [Unknown]
  - Anxiety [Unknown]
  - Headache [Unknown]
  - Drug dose omission [Unknown]
  - Suicidal ideation [Unknown]
  - Sensory disturbance [Unknown]
  - Agitation [Unknown]
  - Tearfulness [Unknown]
  - Dizziness [Unknown]
  - Weight increased [Unknown]
  - Depression [Unknown]
  - Vertigo [Unknown]
  - Nausea [Unknown]
  - Insomnia [Unknown]
  - Pain [Unknown]
  - Tinnitus [Unknown]
  - Paraesthesia [Unknown]
  - Dysphoria [Unknown]
  - Drug withdrawal syndrome [Unknown]
  - Fatigue [Unknown]
  - Drug ineffective [Unknown]

NARRATIVE: CASE EVENT DATE: 2015
